FAERS Safety Report 16562125 (Version 7)
Quarter: 2019Q3

REPORT INFORMATION
  Report Type: Spontaneous
  Country: US (occurrence: US)
  Receive Date: 20190711
  Receipt Date: 20190912
  Transmission Date: 20191004
  Serious: Yes (Hospitalization)
  Sender: FDA-Public Use
  Company Number: US-ACTELION-A-NJ2019-192836

PATIENT
  Sex: Female
  Weight: 72.11 kg

DRUGS (28)
  1. SILDENAFIL CITRATE. [Concomitant]
     Active Substance: SILDENAFIL CITRATE
     Dosage: 20 MG, TID
  2. CETIRIZINE [Concomitant]
     Active Substance: CETIRIZINE HYDROCHLORIDE
     Dosage: 10 MG, QD
     Route: 048
  3. UPTRAVI [Suspect]
     Active Substance: SELEXIPAG
     Dosage: 800 MCG, BID
     Route: 048
  4. DIGOXIN. [Concomitant]
     Active Substance: DIGOXIN
     Dosage: 125 MCG
     Route: 048
  5. GUAIFENESIN. [Concomitant]
     Active Substance: GUAIFENESIN
     Dosage: UNK, Q4HRS
  6. TORSEMIDE. [Concomitant]
     Active Substance: TORSEMIDE
     Dosage: 30 MG, QD
  7. UPTRAVI [Suspect]
     Active Substance: SELEXIPAG
     Dosage: 1000 MCG, BID
     Route: 048
  8. LOVASTATIN. [Concomitant]
     Active Substance: LOVASTATIN
     Dosage: 40 MG, QD
     Route: 048
  9. PRAMIPEXOLE. [Concomitant]
     Active Substance: PRAMIPEXOLE
     Dosage: 0.25 MG, BEDTIME
     Route: 048
  10. UPTRAVI [Suspect]
     Active Substance: SELEXIPAG
     Dosage: 600 UNK
     Route: 048
  11. GABAPENTIN. [Concomitant]
     Active Substance: GABAPENTIN
     Dosage: 600 MG, BEDTIME
     Route: 048
  12. METOPROLOL. [Concomitant]
     Active Substance: METOPROLOL
     Dosage: 25 MG, BID
  13. UPTRAVI [Suspect]
     Active Substance: SELEXIPAG
     Dosage: 400 MCG, QD
     Route: 048
     Dates: start: 20190717
  14. FLUTICASONE. [Concomitant]
     Active Substance: FLUTICASONE
     Dosage: 50 MCG, QD
     Route: 045
  15. FUROSEMIDE. [Concomitant]
     Active Substance: FUROSEMIDE
     Dosage: 60 MG, QD
  16. GLIPIZIDE. [Concomitant]
     Active Substance: GLIPIZIDE
     Dosage: 5 MG, BID
     Route: 048
  17. MELATONIN [Concomitant]
     Active Substance: MELATONIN
     Dosage: 3 MG, PRN
  18. POTASSIUM SULFATE [Concomitant]
     Active Substance: POTASSIUM SULFATE
  19. CYANOCOBALAMIN. [Concomitant]
     Active Substance: CYANOCOBALAMIN
     Dosage: 1000 MCG
     Route: 048
  20. METOLAZONE. [Concomitant]
     Active Substance: METOLAZONE
     Dosage: UNK, QD
  21. UPTRAVI [Suspect]
     Active Substance: SELEXIPAG
     Indication: PULMONARY ARTERIAL HYPERTENSION
     Dosage: 200 MCG, QD
     Route: 048
     Dates: start: 20190619
  22. CHOLECALCIFEROL [Concomitant]
     Active Substance: CHOLECALCIFEROL
     Dosage: 2000 UNITS
     Route: 048
  23. LEVOTHYROXINE. [Concomitant]
     Active Substance: LEVOTHYROXINE
     Dosage: 112 MCG, QD
     Route: 048
  24. METHYLCELLULOSE [Concomitant]
     Active Substance: METHYLCELLULOSES
     Dosage: 500 MG, QD
     Route: 048
  25. UBIQUINONE [Concomitant]
     Active Substance: UBIDECARENONE
     Dosage: 300 MG, QD
     Route: 048
  26. UPTRAVI [Suspect]
     Active Substance: SELEXIPAG
     Dosage: 200 MCG, BID
     Route: 048
  27. ELIQUIS [Concomitant]
     Active Substance: APIXABAN
     Dosage: 5 MG, Q12HRS
     Route: 048
  28. POTASSIUM CHLORIDE. [Concomitant]
     Active Substance: POTASSIUM CHLORIDE
     Dosage: 10 MEQ, BID

REACTIONS (11)
  - Fatigue [Unknown]
  - Fluid overload [Recovered/Resolved]
  - Oedema [Recovered/Resolved]
  - Nausea [Unknown]
  - Oxygen saturation [Recovered/Resolved]
  - Product communication issue [Unknown]
  - Dizziness [Unknown]
  - Headache [Unknown]
  - Underdose [Unknown]
  - Flushing [Unknown]
  - Weight increased [Unknown]
